FAERS Safety Report 8044712-X (Version None)
Quarter: 2012Q1

REPORT INFORMATION
  Report Type: 
  Country: None (occurrence: None)
  Receive Date: 20120113
  Receipt Date: 20120109
  Transmission Date: 20120608
  Serious: Yes (Other)
  Sender: FDA-Public Use
  Company Number: BR-PFIZER INC-2012007213

PATIENT
  Age: 53 Year
  Sex: Male

DRUGS (1)
  1. XALATAN [Suspect]
     Indication: GLAUCOMA
     Dosage: 3 UG (TWO DROPS) IN EACH EYE, 2X/DAY
     Route: 047
     Dates: start: 20080109

REACTIONS (2)
  - BLOOD CHOLESTEROL [None]
  - DIABETES MELLITUS [None]
